FAERS Safety Report 7884157-6 (Version None)
Quarter: 2011Q4

REPORT INFORMATION
  Report Type: 
  Country: None (occurrence: None)
  Receive Date: 20111102
  Receipt Date: 20111024
  Transmission Date: 20120403
  Serious: Yes (Other)
  Sender: FDA-Public Use
  Company Number: JP-GLAXOSMITHKLINE-B0692283A

PATIENT
  Sex: Male

DRUGS (3)
  1. ZEFIX [Suspect]
     Indication: HEPATITIS
     Dosage: 100MG PER DAY
     Route: 048
     Dates: start: 20031001
  2. HEPSERA [Suspect]
     Indication: HEPATITIS B
     Dosage: 10MG PER DAY
     Route: 048
  3. LAMIVUDINE-HBV [Suspect]
     Dosage: 100MG PER DAY

REACTIONS (6)
  - PROTEINURIA [None]
  - FANCONI SYNDROME ACQUIRED [None]
  - HYPOPHOSPHATAEMIA [None]
  - FOOT FRACTURE [None]
  - SWELLING [None]
  - PAIN [None]
